FAERS Safety Report 11145707 (Version 2)
Quarter: 2015Q2

REPORT INFORMATION
  Report Type: Report from Study
  Country: PH (occurrence: PH)
  Receive Date: 20150528
  Receipt Date: 20150623
  Transmission Date: 20150821
  Serious: Yes (Hospitalization)
  Sender: FDA-Public Use
  Company Number: PH-OTSUKA-2015_001378

PATIENT
  Sex: Female
  Weight: 41 kg

DRUGS (1)
  1. ARIPIPRAZOLE. [Suspect]
     Active Substance: ARIPIPRAZOLE
     Indication: AGITATION
     Dosage: 10 MG, UNK
     Route: 030
     Dates: start: 20150519, end: 20150519

REACTIONS (3)
  - Paranoid personality disorder [Recovered/Resolved]
  - Off label use [Unknown]
  - No adverse event [Unknown]
